FAERS Safety Report 6086911-2 (Version None)
Quarter: 2009Q1

REPORT INFORMATION
  Report Type: 
  Country: None (occurrence: None)
  Receive Date: 20090223
  Receipt Date: 20090218
  Transmission Date: 20090719
  Serious: Yes (Death)
  Sender: FDA-Public Use
  Company Number: AU-EISAI MEDIAL RESEARCH-E3810-02537-SPO-AU

PATIENT
  Sex: Male

DRUGS (1)
  1. PARIET (RABEPRAZOLE) [Suspect]
     Indication: NON-CARDIAC CHEST PAIN
     Dosage: UNKNOWN
     Route: 048

REACTIONS (2)
  - BRAIN CANCER METASTATIC [None]
  - GASTRECTOMY [None]
